FAERS Safety Report 9102272 (Version 5)
Quarter: 2013Q4

REPORT INFORMATION
  Report Type: Report from Study
  Country: IT (occurrence: IT)
  Receive Date: 20130218
  Receipt Date: 20131218
  Transmission Date: 20140711
  Serious: Yes (Other)
  Sender: FDA-Public Use
  Company Number: IT-ASTRAZENECA-2013SE09265

PATIENT
  Age: 24602 Day
  Sex: Female

DRUGS (16)
  1. VANDETANIB [Suspect]
     Indication: MEDULLARY THYROID CANCER
     Route: 048
     Dates: start: 20121010, end: 20121030
  2. VANDETANIB [Suspect]
     Indication: MEDULLARY THYROID CANCER
     Dosage: REDUCED OF STUDY DRUG REDUCED.
     Route: 048
     Dates: start: 20121108, end: 20121128
  3. VANDETANIB [Suspect]
     Indication: MEDULLARY THYROID CANCER
     Route: 048
     Dates: start: 20121211, end: 20121223
  4. VANDETANIB [Suspect]
     Indication: MEDULLARY THYROID CANCER
     Route: 048
     Dates: start: 20121227, end: 20130108
  5. VANDETANIB [Suspect]
     Indication: MEDULLARY THYROID CANCER
     Route: 048
     Dates: start: 20130109, end: 20130131
  6. EUTIROX [Concomitant]
     Indication: THYROIDECTOMY
     Route: 048
  7. ROCALTROL [Concomitant]
     Indication: VITAMIN SUPPLEMENTATION
     Route: 048
  8. SIVASTIN [Concomitant]
     Indication: BLOOD CHOLESTEROL ABNORMAL
     Route: 048
  9. CONGESCOR [Concomitant]
     Indication: CORONARY ARTERY DISEASE
     Route: 048
  10. CONGESCOR [Concomitant]
     Indication: HYPERTENSION
     Route: 048
  11. MATRIFEN [Concomitant]
     Indication: NECK PAIN
     Dosage: 37.5 MG ONE PLASTER EVERY 60 HOURS
     Route: 003
  12. OLMESARTAN MEDOXIMIL/IDROCLOROTIAZIDE [Concomitant]
     Indication: HYPERTENSION
     Route: 048
     Dates: start: 20121108
  13. LANSOPRAZOLO [Concomitant]
     Indication: GASTRITIS PROPHYLAXIS
     Route: 048
     Dates: start: 20121206
  14. RANITIDINA [Concomitant]
     Indication: GASTRITIS PROPHYLAXIS
     Route: 048
     Dates: start: 20121206
  15. POTASSION [Concomitant]
     Indication: NUTRITIONAL SUPPLEMENTATION
     Route: 048
     Dates: start: 20121206
  16. KCL [Concomitant]
     Indication: NUTRITIONAL SUPPLEMENTATION
     Dates: start: 20121030

REACTIONS (1)
  - Cholecystitis [Recovered/Resolved]
